FAERS Safety Report 19279349 (Version 3)
Quarter: 2021Q3

REPORT INFORMATION
  Report Type: Spontaneous
  Country: CA (occurrence: CA)
  Receive Date: 20210520
  Receipt Date: 20210701
  Transmission Date: 20211014
  Serious: Yes (Hospitalization, Other)
  Sender: FDA-Public Use
  Company Number: CA-ASTELLAS-2021US017869

PATIENT
  Age: 35 Year
  Sex: Female

DRUGS (3)
  1. XOSPATA [Suspect]
     Active Substance: GILTERITINIB
     Indication: FLT3 GENE MUTATION
     Route: 065
     Dates: start: 20171005, end: 20171018
  2. XOSPATA [Suspect]
     Active Substance: GILTERITINIB
     Indication: ACUTE MYELOID LEUKAEMIA
     Route: 065
     Dates: start: 20171019, end: 20171026
  3. XOSPATA [Suspect]
     Active Substance: GILTERITINIB
     Route: 065
     Dates: start: 20171102, end: 20171108

REACTIONS (4)
  - Blood creatine phosphokinase increased [Recovered/Resolved]
  - Colitis [Recovered/Resolved]
  - Pancytopenia [Recovered/Resolved]
  - Liver function test increased [Recovered/Resolved]

NARRATIVE: CASE EVENT DATE: 20171019
